FAERS Safety Report 15593894 (Version 2)
Quarter: 2018Q4

REPORT INFORMATION
  Report Type: Report from Study
  Country: US (occurrence: US)
  Receive Date: 20181106
  Receipt Date: 20181206
  Transmission Date: 20190205
  Serious: Yes (Hospitalization)
  Sender: FDA-Public Use
  Company Number: US-EISAI MEDICAL RESEARCH-EC-2018-038125

PATIENT
  Age: 67 Year
  Sex: Female
  Weight: 51 kg

DRUGS (20)
  1. PRAVASTATIN SODIUM. [Concomitant]
     Active Substance: PRAVASTATIN SODIUM
  2. MELOXICAM. [Concomitant]
     Active Substance: MELOXICAM
  3. LENVIMA [Suspect]
     Active Substance: LENVATINIB
     Route: 048
     Dates: start: 20180712, end: 2018
  4. ONDANSETRON HCL [Concomitant]
     Active Substance: ONDANSETRON HYDROCHLORIDE
  5. AMLODIPINE BESYLATE. [Concomitant]
     Active Substance: AMLODIPINE BESYLATE
  6. AZITHROMYCIN ANHYDROUS. [Concomitant]
     Active Substance: AZITHROMYCIN ANHYDROUS
  7. NITROFURANTOIN. [Concomitant]
     Active Substance: NITROFURANTOIN
  8. ATENOLOL. [Concomitant]
     Active Substance: ATENOLOL
  9. CENTRUM SILVER WOMEN [Concomitant]
  10. LEVOTHYROXINE SODIUM. [Concomitant]
     Active Substance: LEVOTHYROXINE SODIUM
  11. PHENAZOPYRIDINE. [Concomitant]
     Active Substance: PHENAZOPYRIDINE
  12. LISINOPRIL. [Concomitant]
     Active Substance: LISINOPRIL
  13. SULFAMETHOXAZOLE-TRIME [Concomitant]
  14. LENVIMA [Suspect]
     Active Substance: LENVATINIB
     Indication: THYROID CANCER
     Route: 048
     Dates: start: 20180411, end: 20180711
  15. PROBIOTIC FORMULA [Concomitant]
  16. ALENDRONATE SODIUM. [Concomitant]
     Active Substance: ALENDRONATE SODIUM
  17. PROCHLORPERAZINE. [Concomitant]
     Active Substance: PROCHLORPERAZINE
  18. MAXIMUM D3 [Concomitant]
     Active Substance: CHOLECALCIFEROL
  19. BENAZEPRIL [Concomitant]
     Active Substance: BENAZEPRIL HYDROCHLORIDE
  20. DEXAMETHASONE. [Concomitant]
     Active Substance: DEXAMETHASONE

REACTIONS (9)
  - Muscle spasms [Unknown]
  - Glossitis [Not Recovered/Not Resolved]
  - Constipation [Unknown]
  - Chest pain [Unknown]
  - Weight decreased [Not Recovered/Not Resolved]
  - Blood pressure fluctuation [Not Recovered/Not Resolved]
  - Cardiac disorder [Unknown]
  - Hypertension [Not Recovered/Not Resolved]
  - Decreased appetite [Not Recovered/Not Resolved]

NARRATIVE: CASE EVENT DATE: 2018
